FAERS Safety Report 4430683-1 (Version None)
Quarter: 2004Q3

REPORT INFORMATION
  Report Type: 
  Country: None (occurrence: None)
  Receive Date: 20040819
  Receipt Date: 20040819
  Transmission Date: 20050211
  Serious: Yes (Hospitalization)
  Sender: FDA-Public Use
  Company Number: None

PATIENT
  Age: 66 Year
  Sex: Female
  Weight: 68 kg

DRUGS (2)
  1. FLUOROURACIL [Suspect]
     Indication: ANAL CANCER STAGE III
     Dosage: 1000 IV
     Route: 042
     Dates: start: 20040701
  2. MITOMYCIN-C BULK POWDER [Suspect]
     Indication: ANAL CANCER STAGE III
     Dosage: 10 IV
     Route: 042
     Dates: end: 20040802

REACTIONS (2)
  - NEUTROPENIA [None]
  - PYREXIA [None]
